FAERS Safety Report 24175264 (Version 2)
Quarter: 2025Q2

REPORT INFORMATION
  Report Type: Spontaneous
  Country: US (occurrence: US)
  Receive Date: 20240805
  Receipt Date: 20250529
  Transmission Date: 20250717
  Serious: No
  Sender: SCPHARMACEUTICALS
  Company Number: US-SCPHARMACEUTICALS-2024-SCPH-US000326

PATIENT

DRUGS (9)
  1. FUROSCIX [Suspect]
     Active Substance: FUROSEMIDE
     Indication: Cardiac failure congestive
     Route: 058
     Dates: start: 20240526, end: 20240526
  2. INSULIN NOS [Concomitant]
     Active Substance: INSULIN NOS
  3. LORATADINE [Concomitant]
     Active Substance: LORATADINE
  4. VITAMIN D [Concomitant]
     Active Substance: VITAMIN D NOS
  5. IRON [Concomitant]
     Active Substance: IRON
  6. VITAMIN B [Concomitant]
     Active Substance: VITAMIN B
  7. VITAMIN C [Concomitant]
     Active Substance: ASCORBIC ACID
  8. VITAMIN E [Concomitant]
     Active Substance: .ALPHA.-TOCOPHEROL
  9. FISH OIL [Concomitant]
     Active Substance: FISH OIL

REACTIONS (2)
  - Muscle spasms [Recovered/Resolved]
  - Blood electrolytes decreased [Recovered/Resolved]

NARRATIVE: CASE EVENT DATE: 20240526
